FAERS Safety Report 24889628 (Version 3)
Quarter: 2025Q2

REPORT INFORMATION
  Report Type: Report from Study
  Country: CA (occurrence: CA)
  Receive Date: 20250127
  Receipt Date: 20250416
  Transmission Date: 20250717
  Serious: Yes (Other)
  Sender: TAKEDA
  Company Number: CA-TAKEDA-2025TUS006598

PATIENT
  Sex: Male

DRUGS (15)
  1. VEDOLIZUMAB [Suspect]
     Active Substance: VEDOLIZUMAB
     Indication: Colitis ulcerative
  2. VEDOLIZUMAB [Suspect]
     Active Substance: VEDOLIZUMAB
     Dosage: 300 MILLIGRAM, Q4WEEKS
     Dates: start: 20241025
  3. VEDOLIZUMAB [Suspect]
     Active Substance: VEDOLIZUMAB
     Dosage: 300 MILLIGRAM, Q4WEEKS
  4. PENTASA [Concomitant]
     Active Substance: MESALAMINE
  5. PRAVASTATIN [Concomitant]
     Active Substance: PRAVASTATIN
  6. EZETIMIBE [Concomitant]
     Active Substance: EZETIMIBE
  7. HYDROCHLOROTHIAZIDE [Concomitant]
     Active Substance: HYDROCHLOROTHIAZIDE
  8. LATANOPROST [Concomitant]
     Active Substance: LATANOPROST
  9. ESCITALOPRAM [Concomitant]
     Active Substance: ESCITALOPRAM OXALATE
  10. ARIPIPRAZOLE [Concomitant]
     Active Substance: ARIPIPRAZOLE
  11. TRAZODONE [Concomitant]
     Active Substance: TRAZODONE HYDROCHLORIDE
  12. METFORMIN [Concomitant]
     Active Substance: METFORMIN HYDROCHLORIDE
  13. APIXABAN [Concomitant]
     Active Substance: APIXABAN
  14. PREDNISONE [Concomitant]
     Active Substance: PREDNISONE
  15. MESALAMINE [Concomitant]
     Active Substance: MESALAMINE

REACTIONS (3)
  - Pulmonary mass [Unknown]
  - Pulmonary embolism [Unknown]
  - Anxiety [Unknown]
